FAERS Safety Report 20301552 (Version 2)
Quarter: 2022Q1

REPORT INFORMATION
  Report Type: Spontaneous
  Country: DK (occurrence: DK)
  Receive Date: 20220105
  Receipt Date: 20220113
  Transmission Date: 20220424
  Serious: Yes (Life-Threatening)
  Sender: FDA-Public Use
  Company Number: None

PATIENT
  Age: 32 Year
  Sex: Female
  Weight: 60 kg

DRUGS (1)
  1. DOSTINEX [Suspect]
     Active Substance: CABERGOLINE
     Indication: Lactation inhibition therapy
     Dosage: 0.25 MG, 2X/DAY FOR TWO DAYS
     Route: 048
     Dates: start: 20211204, end: 20211204

REACTIONS (5)
  - Malaise [Unknown]
  - Blood pressure increased [Unknown]
  - Visual impairment [Unknown]
  - Seizure [Recovered/Resolved]
  - Headache [Unknown]

NARRATIVE: CASE EVENT DATE: 20211204
